FAERS Safety Report 4287559-2 (Version None)
Quarter: 2004Q1

REPORT INFORMATION
  Report Type: 
  Country: None (occurrence: None)
  Receive Date: 20040205
  Receipt Date: 20040109
  Transmission Date: 20041129
  Serious: Yes (Congenital Anomaly)
  Sender: FDA-Public Use
  Company Number: A02200400127

PATIENT
  Sex: Male

DRUGS (4)
  1. MYTELASE [Suspect]
     Indication: MYASTHENIC SYNDROME
     Dosage: 90 MG QD; TRANSPLACENTAL
     Route: 064
     Dates: start: 20030101, end: 20030902
  2. INSULIN [Suspect]
     Indication: DIABETES MELLITUS
     Dosage: TRANPLACENTAL
     Route: 064
     Dates: end: 20030902
  3. AZATHIOPRINE [Suspect]
     Indication: MYASTHENIC SYNDROME
     Dosage: 150 MG, QD
     Dates: end: 20030902
  4. MESTINON [Suspect]
     Dosage: 3600 MG QD; TRANPLACENTAL
     Route: 064
     Dates: end: 20030902

REACTIONS (18)
  - ABORTION INDUCED [None]
  - CALCINOSIS [None]
  - COMPLICATIONS OF MATERNAL EXPOSURE TO THERAPEUTIC DRUGS [None]
  - CONGENITAL ANOMALY OF ADRENAL GLAND [None]
  - CONGENITAL JAW MALFORMATION [None]
  - FOLATE DEFICIENCY [None]
  - GENITALIA EXTERNAL AMBIGUOUS [None]
  - KIDNEY MALFORMATION [None]
  - LIVER DISORDER [None]
  - MATERNAL DRUGS AFFECTING FOETUS [None]
  - MULTIPLE CONGENITAL ABNORMALITIES [None]
  - OLIGOHYDRAMNIOS [None]
  - PLACENTAL INSUFFICIENCY [None]
  - PULMONARY HYPOPLASIA [None]
  - SKULL MALFORMATION [None]
  - SYNDACTYLY [None]
  - TALIPES [None]
  - VIRAL INFECTION [None]
